FAERS Safety Report 5420448-6 (Version None)
Quarter: 2007Q3

REPORT INFORMATION
  Report Type: 
  Country: None (occurrence: None)
  Receive Date: 20070817
  Receipt Date: 20070817
  Transmission Date: 20080115
  Serious: No
  Sender: FDA-Public Use
  Company Number: None

PATIENT
  Sex: Male

DRUGS (1)
  1. DILAUDID [Suspect]
     Indication: PAIN
     Dosage: 0.2MG/ML PRN IV
     Route: 042
     Dates: start: 20070701

REACTIONS (2)
  - LETHARGY [None]
  - RESPIRATORY RATE DECREASED [None]
